FAERS Safety Report 7089260-9 (Version None)
Quarter: 2010Q4

REPORT INFORMATION
  Report Type: 
  Country: None (occurrence: None)
  Receive Date: 20101029
  Receipt Date: 20101018
  Transmission Date: 20110411
  Serious: Yes (Life-Threatening)
  Sender: FDA-Public Use
  Company Number: 020550

PATIENT
  Sex: Male
  Weight: 15 kg

DRUGS (10)
  1. KEPPRA [Suspect]
     Indication: EPILEPSY
     Dosage: (40 MG/KG/DAG INTRAVENOUS
     Route: 042
     Dates: start: 20101001, end: 20101003
  2. XYLOMETAZOLIN (XYLOMETAZOLIN) [Suspect]
     Indication: EPILEPSY
     Dosage: (40 MG/KG/DAG INTRAVENOUS
     Route: 042
  3. THIOPENTAL SODIUM [Suspect]
  4. UNKNOWN (SDD INFUSION) [Suspect]
  5. PROPOFOL [Suspect]
  6. GLUCOSE (GLUCOSE INFUSION) [Suspect]
  7. MIDAZOLAM [Concomitant]
  8. FENOBARBITAL /00023201 [Concomitant]
  9. CEFOTAXIM [Concomitant]
  10. PARACETAMOL [Concomitant]

REACTIONS (1)
  - ACUTE HEPATIC FAILURE [None]
